FAERS Safety Report 19693538 (Version 12)
Quarter: 2021Q4

REPORT INFORMATION
  Report Type: Spontaneous
  Country: US (occurrence: US)
  Receive Date: 20210813
  Receipt Date: 20211230
  Transmission Date: 20220303
  Serious: Yes (Hospitalization)
  Sender: FDA-Public Use
  Company Number: US-BIOGEN-2021BI01038184

PATIENT
  Sex: Male

DRUGS (4)
  1. TYSABRI [Suspect]
     Active Substance: NATALIZUMAB
     Indication: Multiple sclerosis
     Route: 065
     Dates: start: 20100423, end: 20210507
  2. TYSABRI [Suspect]
     Active Substance: NATALIZUMAB
     Route: 065
  3. MODERNA COVID-19 VACCINE [Suspect]
     Active Substance: ELASOMERAN
     Indication: COVID-19 prophylaxis
     Dosage: 1ST MODERNA COVID-19 VACCINATION
     Route: 065
     Dates: start: 20210410, end: 20210410
  4. MODERNA COVID-19 VACCINE [Suspect]
     Active Substance: ELASOMERAN
     Dosage: 2ND MODERNA COVID-19 VACCINATION
     Route: 065
     Dates: start: 202105, end: 202105

REACTIONS (14)
  - Encephalitis post varicella [Recovered/Resolved]
  - Toxoplasmosis [Recovered/Resolved]
  - Mental disorder [Not Recovered/Not Resolved]
  - Vaccination complication [Unknown]
  - Infection [Unknown]
  - Gait inability [Not Recovered/Not Resolved]
  - Loss of control of legs [Unknown]
  - Confusional state [Unknown]
  - Musculoskeletal disorder [Not Recovered/Not Resolved]
  - Dysstasia [Not Recovered/Not Resolved]
  - Balance disorder [Unknown]
  - Ulnar nerve injury [Unknown]
  - Median nerve injury [Unknown]
  - Herpes zoster [Unknown]

NARRATIVE: CASE EVENT DATE: 20210101
